FAERS Safety Report 5010976-X (Version None)
Quarter: 2006Q2

REPORT INFORMATION
  Report Type: 
  Country: None (occurrence: None)
  Receive Date: 20060523
  Receipt Date: 20060523
  Transmission Date: 20061013
  Serious: Yes (Hospitalization)
  Sender: FDA-Public Use
  Company Number: None

PATIENT
  Age: 69 Year
  Sex: Male
  Weight: 107 kg

DRUGS (1)
  1. COUMADIN [Suspect]
     Indication: CARDIAC ASSISTANCE DEVICE USER
     Dates: end: 20051128

REACTIONS (4)
  - DRUG TOXICITY [None]
  - GASTRIC DISORDER [None]
  - INTERNATIONAL NORMALISED RATIO INCREASED [None]
  - RECTAL HAEMORRHAGE [None]
